FAERS Safety Report 23973511 (Version 2)
Quarter: 2025Q3

REPORT INFORMATION
  Report Type: Report from Study
  Country: EG (occurrence: EG)
  Receive Date: 20240613
  Receipt Date: 20250711
  Transmission Date: 20251021
  Serious: Yes (Life-Threatening, Other)
  Sender: NOVARTIS
  Company Number: EG-002147023-NVSC2022EG154524

PATIENT
  Age: 32 Year
  Sex: Female
  Weight: 75 kg

DRUGS (14)
  1. XOLAIR [Suspect]
     Active Substance: OMALIZUMAB
     Indication: Urticaria
     Dosage: 150 MG, BIW (EVERY 15 OR 20 DAYS)
     Route: 058
     Dates: start: 202202
  2. XOLAIR [Suspect]
     Active Substance: OMALIZUMAB
     Dosage: 2 DOSAGE FORM, QMO
     Route: 058
  3. XOLAIR [Suspect]
     Active Substance: OMALIZUMAB
     Dosage: 1 DOSAGE FORM, QMO
     Route: 058
  4. XOLAIR [Suspect]
     Active Substance: OMALIZUMAB
     Dosage: 1 DOSAGE FORM, BIW
     Route: 058
     Dates: start: 20220531
  5. XOLAIR [Suspect]
     Active Substance: OMALIZUMAB
     Route: 065
     Dates: start: 20240530
  6. CYCLOSPORINE [Suspect]
     Active Substance: CYCLOSPORINE
     Indication: Urticaria
     Dosage: 1 DOSAGE FORM, BID
     Route: 048
     Dates: start: 20240520, end: 20240527
  7. Estohalt [Concomitant]
     Indication: Gastrointestinal disorder
     Dosage: 6 DOSAGE FORM, QD
     Route: 065
     Dates: start: 202112
  8. CORTISONE [Concomitant]
     Active Substance: CORTISONE
     Indication: Hypersensitivity
     Route: 065
     Dates: start: 202202, end: 202203
  9. PREDNISOLONE [Concomitant]
     Active Substance: PREDNISOLONE
     Indication: Urticaria
     Dosage: 2 DOSAGE FORM, QD
     Route: 048
     Dates: start: 202403
  10. Levcet [Concomitant]
     Indication: Urticaria
     Dosage: 1 DOSAGE FORM, BID
     Route: 048
     Dates: start: 202403
  11. Advancrib [Concomitant]
     Indication: Abdominal discomfort
     Dosage: 1 DOSAGE FORM, QD
     Route: 048
     Dates: start: 20240604
  12. Downoprazol [Concomitant]
     Indication: Abdominal discomfort
     Dosage: 1 DOSAGE FORM, BID
     Route: 048
     Dates: start: 20240604
  13. Cetal [Concomitant]
     Indication: Pyrexia
     Dosage: 1 DOSAGE FORM, BID
     Route: 048
     Dates: start: 20240604
  14. Cetal [Concomitant]
     Indication: Pain

REACTIONS (22)
  - Dizziness [Recovered/Resolved]
  - Helicobacter infection [Recovered/Resolved]
  - Urticaria [Recovered/Resolved]
  - Pruritus [Recovered/Resolved]
  - Therapeutic product effect delayed [Not Recovered/Not Resolved]
  - Inappropriate schedule of product administration [Recovered/Resolved]
  - Wrong technique in device usage process [Recovered/Resolved]
  - Urticaria [Recovered/Resolved]
  - Blood immunoglobulin E increased [Recovering/Resolving]
  - Urticaria [Recovered/Resolved]
  - Rash [Recovered/Resolved]
  - Pyrexia [Recovered/Resolved]
  - Pain [Recovered/Resolved]
  - Feeling cold [Recovered/Resolved]
  - Nasopharyngitis [Recovered/Resolved]
  - Angina pectoris [Unknown]
  - Urticaria [Not Recovered/Not Resolved]
  - Fatigue [Recovered/Resolved]
  - Burning sensation [Recovered/Resolved]
  - Off label use [Not Recovered/Not Resolved]
  - Drug ineffective [Not Recovered/Not Resolved]
  - Product use in unapproved indication [Unknown]

NARRATIVE: CASE EVENT DATE: 20220501
